FAERS Safety Report 5868397-3 (Version None)
Quarter: 2008Q3

REPORT INFORMATION
  Report Type: 
  Country: None (occurrence: None)
  Receive Date: 20080902
  Receipt Date: 20080902
  Transmission Date: 20090109
  Serious: Yes (Other)
  Sender: FDA-Public Use
  Company Number: None

PATIENT
  Age: 57 Year
  Sex: Female
  Weight: 74.8435 kg

DRUGS (1)
  1. ACTONEL [Suspect]
     Indication: OSTEOPENIA
     Dosage: 35MG ONCE PER WEEK PO
     Route: 048
     Dates: start: 20060301, end: 20080901

REACTIONS (3)
  - ARTHRALGIA [None]
  - DYSPNOEA [None]
  - INSOMNIA [None]
